FAERS Safety Report 18949985 (Version 1)
Quarter: 2021Q1

REPORT INFORMATION
  Report Type: Spontaneous
  Country: FR (occurrence: FR)
  Receive Date: 20210227
  Receipt Date: 20210227
  Transmission Date: 20210420
  Serious: Yes (Life-Threatening)
  Sender: FDA-Public Use
  Company Number: FR-TEVA-2021-FR-1883053

PATIENT
  Age: 71 Year
  Sex: Male
  Weight: 85 kg

DRUGS (7)
  1. ROCURONIUM (BROMURE DE) [Suspect]
     Active Substance: ROCURONIUM BROMIDE
     Dosage: 1.2MG/KG
     Route: 042
  2. KETAMINE [Suspect]
     Active Substance: KETAMINE
     Dosage: 0.5MG/KG
     Route: 041
  3. ANDROTARDYL 250 MG/1 ML, SOLUTION INJECTABLE INTRAMUSCULAIRE [Concomitant]
     Active Substance: TESTOSTERONE
     Dosage: 250MG
     Route: 030
     Dates: end: 202010
  4. DEXMEDETOMIDINE (CHLORHYDRATE DE) [Suspect]
     Active Substance: DEXMEDETOMIDINE HYDROCHLORIDE
     Route: 042
  5. APROVEL 150 MG, COMPRIME [Concomitant]
     Active Substance: IRBESARTAN
     Indication: HYPERTENSION
     Dosage: 150MG
     Route: 048
  6. PROPOFOL. [Suspect]
     Active Substance: PROPOFOL
     Dosage: 3MG/KG
     Route: 042
  7. LIDOCAINE. [Suspect]
     Active Substance: LIDOCAINE
     Dosage: 2MG/KG
     Route: 041

REACTIONS (1)
  - Cardio-respiratory arrest [Recovered/Resolved]

NARRATIVE: CASE EVENT DATE: 20210114
